FAERS Safety Report 9900253 (Version 1)
Quarter: 2014Q1

REPORT INFORMATION
  Report Type: Spontaneous
  Country: RO (occurrence: RO)
  Receive Date: 20140215
  Receipt Date: 20140215
  Transmission Date: 20141002
  Serious: Yes (Other)
  Sender: FDA-Public Use
  Company Number: RO-ROCHE-1346206

PATIENT
  Age: 66 Year
  Sex: Female
  Weight: 74 kg

DRUGS (3)
  1. HERCEPTIN [Suspect]
     Indication: BREAST CANCER
     Route: 042
     Dates: start: 20140115, end: 20140206
  2. ZOMETA [Suspect]
     Indication: HYPERCALCAEMIA
     Route: 042
     Dates: start: 20140115, end: 20140206
  3. ANASTROZOL [Concomitant]
     Indication: BREAST CANCER
     Dosage: 1 TABLET DAILY
     Route: 048
     Dates: start: 20120518

REACTIONS (6)
  - Chest pain [Recovering/Resolving]
  - Myalgia [Recovering/Resolving]
  - Chills [Recovered/Resolved]
  - Nausea [Recovered/Resolved]
  - Vomiting [Recovered/Resolved]
  - Chest pain [Recovering/Resolving]
